FAERS Safety Report 7584060-5 (Version None)
Quarter: 2011Q2

REPORT INFORMATION
  Report Type: 
  Country: None (occurrence: None)
  Receive Date: 20110628
  Receipt Date: 20110628
  Transmission Date: 20111010
  Serious: Yes (Life-Threatening, Hospitalization, Disabling)
  Sender: FDA-Public Use
  Company Number: None

PATIENT
  Age: 64 Year
  Sex: Female
  Weight: 55.3388 kg

DRUGS (7)
  1. ATENOLOL [Concomitant]
  2. VITAMIN D [Concomitant]
  3. BETAMETHASONE DIPROPIONATE [Concomitant]
  4. FOSAMAX [Suspect]
     Indication: OSTEOPOROSIS
     Dosage: 70MG WEEKLY PO
     Route: 048
     Dates: start: 20020101
  5. FOSAMAX [Suspect]
     Indication: OSTEOPOROSIS
     Dosage: 70MG WEEKLY PO
     Route: 048
     Dates: start: 20110301
  6. FEXOFENADINE [Concomitant]
  7. CALCIUM CARBONATE [Concomitant]

REACTIONS (3)
  - FEMUR FRACTURE [None]
  - FRACTURE DISPLACEMENT [None]
  - STRESS FRACTURE [None]
